FAERS Safety Report 25260701 (Version 2)
Quarter: 2025Q2

REPORT INFORMATION
  Report Type: Spontaneous
  Country: EE (occurrence: EE)
  Receive Date: 20250501
  Receipt Date: 20250510
  Transmission Date: 20250716
  Serious: Yes (Life-Threatening, Other)
  Sender: NOVO NORDISK
  Company Number: EE-NOVOPROD-1405302

PATIENT
  Age: 64 Year
  Sex: Male
  Weight: 89 kg

DRUGS (2)
  1. RYBELSUS [Suspect]
     Active Substance: SEMAGLUTIDE
     Indication: Weight control
     Dosage: 3 MG, QD
     Route: 048
     Dates: start: 20240213, end: 202403
  2. RYBELSUS [Suspect]
     Active Substance: SEMAGLUTIDE
     Indication: Weight control
     Dosage: 7 MG, QD
     Route: 048
     Dates: start: 202403, end: 202406

REACTIONS (2)
  - Gallbladder empyema [Recovered/Resolved]
  - Off label use [Unknown]

NARRATIVE: CASE EVENT DATE: 20240213
